FAERS Safety Report 12811253 (Version 1)
Quarter: 2016Q4

REPORT INFORMATION
  Report Type: Spontaneous
  Country: US (occurrence: US)
  Receive Date: 20161004
  Receipt Date: 20161004
  Transmission Date: 20170207
  Serious: Yes (Hospitalization)
  Sender: FDA-Public Use
  Company Number: None

PATIENT
  Age: 23 Month
  Sex: Male
  Weight: 12.15 kg

DRUGS (1)
  1. BABY TEETHING (HYLAND HOMEOPATHIC) [Suspect]
     Active Substance: HOMEOPATHICS
     Indication: TEETHING
     Dosage: ?          OTHER STRENGTH:UNKNOWN;QUANTITY:2 TABLET(S);?
     Route: 060
     Dates: start: 20150619, end: 20150619

REACTIONS (5)
  - Hypersomnia [None]
  - Lethargy [None]
  - Hypophagia [None]
  - Unresponsive to stimuli [None]
  - Body temperature increased [None]

NARRATIVE: CASE EVENT DATE: 20150621
